FAERS Safety Report 21385568 (Version 2)
Quarter: 2023Q1

REPORT INFORMATION
  Report Type: Report from Study
  Country: US (occurrence: US)
  Receive Date: 20220928
  Receipt Date: 20230106
  Transmission Date: 20230418
  Serious: Yes (Other)
  Sender: FDA-Public Use
  Company Number: US-ABBVIE-4131078

PATIENT
  Sex: Male

DRUGS (9)
  1. SKYRIZI [Suspect]
     Active Substance: RISANKIZUMAB-RZAA
     Indication: Psoriasis
     Dosage: STRENGTH- 150 MG
     Route: 058
     Dates: start: 2019
  2. FLOMAX [Concomitant]
     Active Substance: TAMSULOSIN HYDROCHLORIDE
     Indication: Prostatomegaly
     Dosage: 0.4 MILLIGRAM
  3. Moderna [Concomitant]
     Indication: COVID-19 immunisation
     Dosage: ONE IN ONCE
     Route: 030
  4. TAMSULOSIN [Concomitant]
     Active Substance: TAMSULOSIN
     Indication: Renal disorder
     Dosage: 0.4 MILLIGRAM
     Route: 048
  5. FINASTERIDE [Concomitant]
     Active Substance: FINASTERIDE
     Indication: Renal disorder
  6. PLAVIX [Concomitant]
     Active Substance: CLOPIDOGREL BISULFATE
     Indication: Anticoagulant therapy
     Dosage: 75 MILLIGRAM
  7. Generic Proscar [Concomitant]
     Indication: Prostatomegaly
  8. GABAPENTIN [Concomitant]
     Active Substance: GABAPENTIN
     Indication: Herpes zoster
     Dosage: 300 MILLIGRAM
     Dates: start: 2022, end: 2022
  9. CALCITRIOL [Concomitant]
     Active Substance: CALCITRIOL
     Indication: Vitamin D abnormal
     Dosage: TIME INTERVAL: 0.33333333 WEEKS: 0.25 MICROGRAM
     Route: 048

REACTIONS (10)
  - Obstruction [Recovered/Resolved]
  - Arthralgia [Unknown]
  - Seizure [Recovered/Resolved]
  - Renal disorder [Unknown]
  - Cardiovascular disorder [Recovering/Resolving]
  - Ulcer [Recovered/Resolved]
  - Herpes zoster [Recovered/Resolved]
  - Back pain [Not Recovered/Not Resolved]
  - Diabetes mellitus [Recovering/Resolving]
  - Neck pain [Recovered/Resolved]

NARRATIVE: CASE EVENT DATE: 20200101
